FAERS Safety Report 4481257-8 (Version None)
Quarter: 2004Q4

REPORT INFORMATION
  Report Type: 
  Country: None (occurrence: None)
  Receive Date: 20040923
  Receipt Date: 20040615
  Transmission Date: 20050328
  Serious: No
  Sender: FDA-Public Use
  Company Number: USA030332614

PATIENT
  Age: 68 Year
  Sex: Female
  Weight: 46 kg

DRUGS (4)
  1. FORTEO [Suspect]
     Indication: OSTEOPOROSIS
     Dates: start: 20030201
  2. PLAQUENIL (HYDROXYCHLORIDE SULFATE) [Concomitant]
  3. PREDNISONE [Concomitant]
  4. CAPTOPRIL [Concomitant]

REACTIONS (10)
  - ABDOMINAL PAIN UPPER [None]
  - ARTHRALGIA [None]
  - ASTHENIA [None]
  - BONE PAIN [None]
  - CHEST PAIN [None]
  - FAECES DISCOLOURED [None]
  - FATIGUE [None]
  - INJECTION SITE HAEMORRHAGE [None]
  - PAIN [None]
  - RENAL PAIN [None]
